FAERS Safety Report 5737127-8 (Version None)
Quarter: 2008Q2

REPORT INFORMATION
  Report Type: 
  Country: None (occurrence: None)
  Receive Date: 20080513
  Receipt Date: 20080513
  Transmission Date: 20081010
  Serious: Yes (Death, Life-Threatening)
  Sender: FDA-Public Use
  Company Number: None

PATIENT
  Age: 81 Year
  Sex: Female
  Weight: 68.4932 kg

DRUGS (1)
  1. DIGITEK [Suspect]
     Indication: CARDIAC DISORDER
     Dosage: .125 MG PER DAY PO
     Route: 048
     Dates: start: 19981001, end: 20080306

REACTIONS (1)
  - HEART RATE DECREASED [None]
